FAERS Safety Report 7150526-5 (Version None)
Quarter: 2010Q4

REPORT INFORMATION
  Report Type: 
  Country: None (occurrence: None)
  Receive Date: 20101206
  Receipt Date: 20101206
  Transmission Date: 20110411
  Serious: Yes (Hospitalization)
  Sender: FDA-Public Use
  Company Number: None

PATIENT
  Age: 46 Year
  Sex: Male
  Weight: 145 kg

DRUGS (2)
  1. LISINOPRIL [Suspect]
     Indication: ANGIOEDEMA
     Dosage: 40 MG EVERY DAY PO
     Route: 048
     Dates: start: 20100426, end: 20101014
  2. LISINOPRIL [Suspect]
     Indication: RASH
     Dosage: 40 MG EVERY DAY PO
     Route: 048
     Dates: start: 20100426, end: 20101014

REACTIONS (2)
  - ANGIOEDEMA [None]
  - RASH [None]
